FAERS Safety Report 18061259 (Version 1)
Quarter: 2020Q3

REPORT INFORMATION
  Report Type: Spontaneous
  Country: NL (occurrence: NL)
  Receive Date: 20200723
  Receipt Date: 20200723
  Transmission Date: 20201103
  Serious: Yes (Other)
  Sender: FDA-Public Use
  Company Number: NL-MYLANLABS-2020M1064143

PATIENT
  Age: 75 Year
  Sex: Male
  Weight: 80 kg

DRUGS (10)
  1. DIAZEPAM. [Concomitant]
     Active Substance: DIAZEPAM
     Indication: SEDATIVE THERAPY
     Dosage: 0.5 DOSAGE FORM, QD (1X PER DAY HALF TABLET)
     Route: 065
     Dates: start: 20170912
  2. PANTOPRAZOLE [Concomitant]
     Active Substance: PANTOPRAZOLE
     Indication: GASTRIC DISORDER
     Dosage: 1 DOSAGE FORM, QD (1X PER DAY 1 TABLET)
     Route: 065
     Dates: start: 20070824
  3. RYTMONORM 150 MG, OMHULDE TABLETTEN [Suspect]
     Active Substance: PROPAFENONE
     Indication: ARRHYTHMIA
     Dosage: 1 DOSAGE FORM, BID (2X PER DAY, 1 TABLET)
     Route: 048
     Dates: start: 19920325
  4. ELOCON [Concomitant]
     Active Substance: MOMETASONE FUROATE
     Indication: ECZEMA
     Dosage: 1?2X PER DAY APPLY OINTMENT WHEN HAVING COMPLAINTS
     Dates: start: 20180923
  5. METAMUCIL [Concomitant]
     Active Substance: PLANTAGO SEED
     Indication: CONSTIPATION
     Dosage: UNK, BID (2X PER 1 SACHETS)
     Route: 065
     Dates: start: 20191016
  6. CLOPIDOGREL [Concomitant]
     Active Substance: CLOPIDOGREL BISULFATE
     Indication: ANTIPLATELET THERAPY
     Dosage: 0.5 DOSAGE FORM, QD (1X PER DAY HALF A TABLET))
     Route: 065
     Dates: start: 20170619
  7. RAMIPRIL. [Concomitant]
     Active Substance: RAMIPRIL
     Indication: HYPERTENSION
     Dosage: 1 DOSAGE FORM, QD (1X PER DAY 1 TABLET)
     Route: 065
     Dates: start: 20191202
  8. ENTOCORT [Concomitant]
     Active Substance: BUDESONIDE
     Indication: CROHN^S DISEASE
     Dosage: 1 DOSAGE FORM, BID (2X PER DAY 1 CAPSULE)
     Route: 065
     Dates: start: 20170502
  9. TEARS NATURAL [Concomitant]
     Active Substance: DEXTRAN
     Indication: DRY EYE
     Dosage: 1 TO 4 X PER DAY 1 DROP IN BOTH EYES
     Route: 047
     Dates: start: 20170426
  10. MOMETASON [Concomitant]
     Active Substance: MOMETASONE FUROATE
     Indication: HYPERSENSITIVITY
     Dosage: 1X PER DAY 2 SPRAYS IN BOTH NOSTRILS
     Route: 045
     Dates: start: 20170718

REACTIONS (1)
  - Drug ineffective [Unknown]

NARRATIVE: CASE EVENT DATE: 202007
